FAERS Safety Report 11030588 (Version 3)
Quarter: 2016Q1

REPORT INFORMATION
  Report Type: Spontaneous
  Country: US (occurrence: US)
  Receive Date: 20150415
  Receipt Date: 20160126
  Transmission Date: 20160525
  Serious: Yes (Hospitalization, Other)
  Sender: FDA-Public Use
  Company Number: US-MERCK-1504USA009908

PATIENT
  Age: 52 Year
  Sex: Male
  Weight: 132.4 kg

DRUGS (4)
  1. JANUVIA [Suspect]
     Active Substance: SITAGLIPTIN PHOSPHATE
     Dosage: 400 MG, QD
     Route: 048
     Dates: start: 20150221, end: 20150224
  2. JANUVIA [Suspect]
     Active Substance: SITAGLIPTIN PHOSPHATE
     Dosage: 200 MG, QD
     Route: 048
     Dates: start: 20150219, end: 20150220
  3. INSULIN HUMAN [Suspect]
     Active Substance: INSULIN HUMAN
     Indication: DIABETES MELLITUS
  4. JANUVIA [Suspect]
     Active Substance: SITAGLIPTIN PHOSPHATE
     Indication: DIABETES MELLITUS
     Dosage: 100 MG, QD
     Route: 048
     Dates: start: 20150217, end: 20150220

REACTIONS (14)
  - Proteinuria [Unknown]
  - Hepatic steatosis [Unknown]
  - Dyspepsia [Not Recovered/Not Resolved]
  - Dehydration [Unknown]
  - Cardiac failure congestive [Unknown]
  - Pleural effusion [Unknown]
  - Fluid retention [Recovering/Resolving]
  - Localised oedema [Unknown]
  - Oedema peripheral [Recovering/Resolving]
  - Pulmonary mass [Unknown]
  - Oesophageal disorder [Unknown]
  - Gastroenteritis viral [Recovered/Resolved]
  - Haematuria [Unknown]
  - Hernia [Unknown]

NARRATIVE: CASE EVENT DATE: 20150219
